FAERS Safety Report 11348925 (Version 3)
Quarter: 2015Q4

REPORT INFORMATION
  Report Type: Spontaneous
  Country: JP (occurrence: JP)
  Receive Date: 20150807
  Receipt Date: 20151003
  Transmission Date: 20160304
  Serious: Yes (Death, Other)
  Sender: FDA-Public Use
  Company Number: JP-AMGEN-JPNSP2015079438

PATIENT
  Age: 66 Year
  Sex: Male
  Weight: 58 kg

DRUGS (18)
  1. SODIUM RABEPRAZOLE [Concomitant]
     Active Substance: RABEPRAZOLE SODIUM
     Dosage: 10 MG, QD
     Route: 048
     Dates: start: 20141120
  2. POLARAMINE [Concomitant]
     Active Substance: DEXCHLORPHENIRAMINE MALEATE
     Dosage: 5 MG, UNK
     Route: 041
     Dates: start: 20150108
  3. ISOTONIC SODIUM CHLORIDE SOLUTION [Concomitant]
     Active Substance: SODIUM CHLORIDE
     Dosage: 250 ML, UNK
     Route: 041
     Dates: start: 20150108
  4. G-LASTA [Suspect]
     Active Substance: PEGFILGRASTIM
     Indication: COLONY STIMULATING FACTOR PROPHYLAXIS
     Dosage: 3.6 MG, SINGLE
     Route: 058
     Dates: start: 20150109, end: 20150109
  5. G-LASTA [Suspect]
     Active Substance: PEGFILGRASTIM
     Dosage: 3.6 MG, SINGLE
     Route: 058
     Dates: start: 20150402, end: 20150402
  6. G-LASTA [Suspect]
     Active Substance: PEGFILGRASTIM
     Dosage: 3.6 MG, SINGLE
     Route: 058
     Dates: start: 20150227, end: 20150227
  7. G-LASTA [Suspect]
     Active Substance: PEGFILGRASTIM
     Dosage: 3.6 MG, SINGLE
     Route: 058
     Dates: start: 20150501, end: 20150501
  8. JEVTANA [Suspect]
     Active Substance: CABAZITAXEL
     Indication: PRODUCT USED FOR UNKNOWN INDICATION
     Dosage: 30 MG, UNK
     Route: 041
     Dates: start: 20150108, end: 20150108
  9. JEVTANA [Suspect]
     Active Substance: CABAZITAXEL
     Dosage: 30 MG, UNK
     Route: 041
     Dates: start: 20150401, end: 20150401
  10. JEVTANA [Suspect]
     Active Substance: CABAZITAXEL
     Dosage: 30 MG, UNK
     Route: 041
     Dates: start: 20150205, end: 20150205
  11. PREDONINE [Concomitant]
     Active Substance: PREDNISOLONE\PREDNISOLONE ACETATE\PREDNISOLONE SODIUM SUCCINATE
     Dosage: 5 MG, BID
     Route: 048
     Dates: start: 20141120
  12. MAGMITT [Concomitant]
     Active Substance: MAGNESIUM OXIDE
     Dosage: 250 MG, TID
     Route: 048
  13. ZANTAC [Concomitant]
     Active Substance: RANITIDINE HYDROCHLORIDE
     Dosage: 50 MG, UNK
     Route: 041
     Dates: start: 20150108
  14. G-LASTA [Suspect]
     Active Substance: PEGFILGRASTIM
     Dosage: 3.6 MG, SINGLE
     Route: 058
     Dates: start: 20150206, end: 20150206
  15. JEVTANA [Suspect]
     Active Substance: CABAZITAXEL
     Dosage: 30 MG, UNK
     Route: 041
     Dates: start: 20150226, end: 20150226
  16. JEVTANA [Suspect]
     Active Substance: CABAZITAXEL
     Dosage: 30 MG, SINGLE
     Route: 041
     Dates: start: 20150430, end: 20150430
  17. FERRUM                             /00023501/ [Concomitant]
     Dosage: 100 MG, QD
     Route: 048
  18. DEXART [Concomitant]
     Active Substance: DEXAMETHASONE SODIUM PHOSPHATE
     Dosage: 6.6 MG, UNK
     Route: 041
     Dates: start: 20150108

REACTIONS (2)
  - Interstitial lung disease [Not Recovered/Not Resolved]
  - Interstitial lung disease [Fatal]

NARRATIVE: CASE EVENT DATE: 20150622
